FAERS Safety Report 5313794-8 (Version None)
Quarter: 2007Q2

REPORT INFORMATION
  Report Type: 
  Country: None (occurrence: None)
  Receive Date: 20070501
  Receipt Date: 20070426
  Transmission Date: 20071010
  Serious: Yes (Hospitalization)
  Sender: FDA-Public Use
  Company Number: US-BRISTOL-MYERS SQUIBB COMPANY-13344353

PATIENT
  Age: 46 Year
  Sex: Female
  Weight: 44 kg

DRUGS (8)
  1. CARBOPLATIN [Suspect]
     Indication: NON-SMALL CELL LUNG CANCER
     Route: 042
     Dates: start: 20060324
  2. PACLITAXEL [Suspect]
     Indication: NON-SMALL CELL LUNG CANCER
     Route: 042
     Dates: start: 20060324
  3. AMITRIPTYLINE HCL [Concomitant]
     Route: 048
     Dates: start: 20060308
  4. DURAGESIC-100 [Concomitant]
     Route: 062
     Dates: start: 20060308
  5. ADVAIR DISKUS 100/50 [Concomitant]
     Indication: COUGH
     Route: 055
     Dates: start: 20060308
  6. VICODIN [Concomitant]
     Route: 048
     Dates: start: 20060308
  7. TESSALON [Concomitant]
     Indication: COUGH
     Dates: start: 20060323
  8. SENOKOT [Concomitant]
     Dates: start: 20060323

REACTIONS (1)
  - DEHYDRATION [None]
